FAERS Safety Report 9329226 (Version 1)
Quarter: 2013Q2

REPORT INFORMATION
  Report Type: Spontaneous
  Country: US (occurrence: US)
  Receive Date: 20130604
  Receipt Date: 20130604
  Transmission Date: 20140414
  Serious: No
  Sender: FDA-Public Use
  Company Number: US-SANOFI-AVENTIS-2012SA080780

PATIENT
  Sex: Female

DRUGS (2)
  1. LANTUS SOLOSTAR [Suspect]
     Dosage: DOSE:28 UNIT(S)
     Route: 058
     Dates: start: 201210, end: 201210
  2. SOLOSTAR [Suspect]
     Dates: start: 201208

REACTIONS (2)
  - Chest pain [Recovered/Resolved]
  - Vision blurred [Recovered/Resolved]
